FAERS Safety Report 14611171 (Version 1)
Quarter: 2018Q1

REPORT INFORMATION
  Report Type: Other
  Country: ES (occurrence: ES)
  Receive Date: 20180308
  Receipt Date: 20180308
  Transmission Date: 20180509
  Serious: Yes (Life-Threatening, Other)
  Sender: FDA-Public Use
  Company Number: ES-VELOXIS PHARMACEUTICALS-2043220

PATIENT
  Age: 37 Year
  Sex: Female
  Weight: 60 kg

DRUGS (6)
  1. MICAFUNGIN [Concomitant]
     Active Substance: MICAFUNGIN
  2. MEROPENEM. [Concomitant]
     Active Substance: MEROPENEM
  3. MYCOPHENOLATE MOFETIL. [Concomitant]
     Active Substance: MYCOPHENOLATE MOFETIL
  4. GANCICLOVIR. [Concomitant]
     Active Substance: GANCICLOVIR
  5. TRIMETHOPRIM SULFAMETHOXAZOLE [Concomitant]
     Active Substance: SULFAMETHOXAZOLE\TRIMETHOPRIM
  6. ENVARSUS XR [Suspect]
     Active Substance: TACROLIMUS
     Indication: LUNG TRANSPLANT

REACTIONS (4)
  - Tracheobronchitis [Recovered/Resolved]
  - Pseudomonas test positive [Recovered/Resolved]
  - Scedosporium infection [Recovered/Resolved]
  - Intentional product use issue [Recovered/Resolved]
